FAERS Safety Report 6439514-1 (Version None)
Quarter: 2009Q4

REPORT INFORMATION
  Report Type: 
  Country: None (occurrence: None)
  Receive Date: 20091113
  Receipt Date: 20091109
  Transmission Date: 20100525
  Serious: Yes (Other)
  Sender: FDA-Public Use
  Company Number: A0816076A

PATIENT
  Sex: Female

DRUGS (2)
  1. ADVAIR DISKUS 100/50 [Suspect]
     Indication: PULMONARY FUNCTION TEST DECREASED
     Dosage: 1PUFF PER DAY
     Route: 055
     Dates: start: 20080901
  2. SPIRIVA [Concomitant]

REACTIONS (1)
  - CATARACT [None]
